FAERS Safety Report 4412102-4 (Version None)
Quarter: 2004Q3

REPORT INFORMATION
  Report Type: 
  Country: None (occurrence: None)
  Receive Date: 20040730
  Receipt Date: 20040717
  Transmission Date: 20050211
  Serious: Yes (Hospitalization)
  Sender: FDA-Public Use
  Company Number: GB-GLAXOSMITHKLINE-B0339433A

PATIENT
  Age: 43 Year

DRUGS (2)
  1. ACYCLOVIR [Suspect]
     Dosage: 900MG PER DAY
     Route: 042
     Dates: start: 20040617, end: 20040630
  2. LEVOTHYROXINE SODIUM [Concomitant]
     Indication: HYPOTHYROIDISM
     Dosage: 75MCG PER DAY
     Route: 048

REACTIONS (1)
  - HYPONATRAEMIA [None]
